FAERS Safety Report 9440310 (Version 4)
Quarter: 2013Q3

REPORT INFORMATION
  Report Type: Spontaneous
  Country: IT (occurrence: IT)
  Receive Date: 20130805
  Receipt Date: 20130927
  Transmission Date: 20140515
  Serious: Yes (Death, Hospitalization, Other)
  Sender: FDA-Public Use
  Company Number: IT-ELI_LILLY_AND_COMPANY-IT201307010308

PATIENT
  Age: 81 Year
  Sex: Female

DRUGS (11)
  1. ZYPREXA [Suspect]
     Indication: BIPOLAR DISORDER
     Dosage: 10 MG, QD
     Route: 048
     Dates: start: 20130524, end: 20130622
  2. TICLOPIDINE HYDROCHLORIDE [Suspect]
     Indication: CEREBROVASCULAR ACCIDENT
     Dosage: 250 MG, QD
     Route: 065
     Dates: start: 20100601, end: 20130622
  3. TICLOPIDINE HYDROCHLORIDE [Suspect]
     Indication: PROPHYLAXIS
  4. ASACOL [Suspect]
     Indication: COLITIS ULCERATIVE
     Dosage: 2400 MG, QD
     Route: 048
     Dates: start: 20130412, end: 20130622
  5. ASACOL [Suspect]
     Indication: RECTAL HAEMORRHAGE
  6. ASACOL [Suspect]
     Indication: COLITIS ISCHAEMIC
  7. ANTRA [Concomitant]
     Dosage: 20 MG, UNKNOWN
     Route: 048
  8. EUTIROX [Concomitant]
     Dosage: 100 UG, UNKNOWN
     Route: 048
  9. LOSAZID [Concomitant]
     Dosage: 1 DF, UNKNOWN
     Route: 048
  10. SPIRIVA [Concomitant]
     Dosage: 18 UG, UNKNOWN
     Route: 055
  11. FOLINA                             /00024201/ [Concomitant]
     Dosage: 2 DF, UNKNOWN
     Route: 048

REACTIONS (7)
  - Endocarditis [Fatal]
  - Sepsis [Fatal]
  - Cardiac enzymes increased [Unknown]
  - Electrocardiogram low voltage [Unknown]
  - Leukopenia [Recovered/Resolved]
  - Neutropenia [Recovered/Resolved]
  - Diarrhoea [Unknown]
